FAERS Safety Report 13832729 (Version 1)
Quarter: 2017Q3

REPORT INFORMATION
  Report Type: Spontaneous
  Country: US (occurrence: US)
  Receive Date: 20170803
  Receipt Date: 20170803
  Transmission Date: 20171127
  Serious: No
  Sender: FDA-Public Use
  Company Number: None

PATIENT
  Age: 69 Year
  Sex: Male
  Weight: 98.55 kg

DRUGS (5)
  1. CINNAMON. [Concomitant]
     Active Substance: CINNAMON
  2. VITAMIN D [Concomitant]
     Active Substance: CHOLECALCIFEROL
  3. 81 MG ASPIRIN [Concomitant]
  4. MAGNESIUM CITRATE SALINE LAXATIVE ORAL SOULUTION [Suspect]
     Active Substance: MAGNESIUM CITRATE
     Indication: CONSTIPATION
     Dosage: QUANTITY:10 OUNCE(S);OTHER FREQUENCY:ONCE;?
     Route: 048
     Dates: start: 20170731, end: 20170801
  5. MULTI VITAMIN [Concomitant]
     Active Substance: VITAMINS

REACTIONS (3)
  - Diarrhoea [None]
  - Abdominal pain upper [None]
  - Dysuria [None]

NARRATIVE: CASE EVENT DATE: 20170801
